FAERS Safety Report 10183714 (Version 1)
Quarter: 2014Q2

REPORT INFORMATION
  Report Type: Spontaneous
  Country: US (occurrence: US)
  Receive Date: 20140520
  Receipt Date: 20140520
  Transmission Date: 20141212
  Serious: No
  Sender: FDA-Public Use
  Company Number: US-ENDO PHARMACEUTICALS INC.-GILD20130008

PATIENT
  Age: 22 Year
  Sex: Female
  Weight: 65.74 kg

DRUGS (2)
  1. GILDESS FE 1.5/30 [Suspect]
     Indication: DYSMENORRHOEA
     Dosage: 1.5/0.03 MG
     Route: 048
     Dates: start: 20130519, end: 20130521
  2. GILDESS FE 1/20 TABLETS [Concomitant]
     Indication: DYSMENORRHOEA
     Dosage: 1/0.02 MG
     Route: 048
     Dates: start: 201205, end: 20130518

REACTIONS (2)
  - Retching [Recovered/Resolved]
  - Abdominal pain upper [Recovered/Resolved]
